FAERS Safety Report 5427067-6 (Version None)
Quarter: 2007Q3

REPORT INFORMATION
  Report Type: 
  Country: None (occurrence: None)
  Receive Date: 20070824
  Receipt Date: 20070824
  Transmission Date: 20080115
  Serious: Yes (Life-Threatening)
  Sender: FDA-Public Use
  Company Number: None

PATIENT
  Age: 88 Year

DRUGS (10)
  1. HEPARIN [Suspect]
     Indication: PROPHYLAXIS
     Dosage: 5000 UNITS SQ Q8
     Route: 058
     Dates: start: 20070614, end: 20070617
  2. ASPIRIN [Concomitant]
  3. COLACE [Concomitant]
  4. DIGOXIN [Concomitant]
  5. SYNTHROID [Concomitant]
  6. CALCIUM [Concomitant]
  7. FERROUS SULFATE TAB [Concomitant]
  8. INSULIN [Concomitant]
  9. BACTRIM [Concomitant]
  10. POTASSIUM CHLORIDE [Concomitant]

REACTIONS (7)
  - ACTIVATED PARTIAL THROMBOPLASTIN TIME PROLONGED [None]
  - EPISTAXIS [None]
  - HAEMATOMA [None]
  - HAEMORRHAGE [None]
  - HEART RATE INCREASED [None]
  - PO2 DECREASED [None]
  - WOUND SECRETION [None]
